FAERS Safety Report 8935599 (Version 1)
Quarter: 2012Q4

REPORT INFORMATION
  Report Type: 
  Country: US (occurrence: US)
  Receive Date: 20121130
  Receipt Date: 20121130
  Transmission Date: 20130627
  Serious: Yes (Congenital Anomaly, Other)
  Sender: FDA-Public Use
  Company Number: US-PFIZER INC-2012297618

PATIENT
  Sex: Female
  Weight: 3.4 kg

DRUGS (6)
  1. ZOLOFT [Suspect]
     Dosage: 50 mg, 1x/day
     Route: 064
     Dates: start: 200910
  2. FIORICET [Concomitant]
     Dosage: UNK
     Route: 064
  3. ZOFRAN [Concomitant]
     Dosage: UNK
     Route: 064
  4. TYLENOL [Concomitant]
     Dosage: UNK
     Route: 064
  5. SUDAFED [Concomitant]
     Dosage: UNK
     Route: 064
  6. PRENATAL VITAMINS [Concomitant]
     Dosage: UNK
     Route: 064

REACTIONS (6)
  - Maternal exposure timing unspecified [Unknown]
  - Talipes [Unknown]
  - Cytogenetic abnormality [Recovered/Resolved]
  - Hyperbilirubinaemia [Recovered/Resolved]
  - Nervous system disorder [Recovered/Resolved]
  - Atrial septal defect [Unknown]
